FAERS Safety Report 26081040 (Version 1)
Quarter: 2025Q4

REPORT INFORMATION
  Report Type: Spontaneous
  Country: US (occurrence: US)
  Receive Date: 20251124
  Receipt Date: 20251124
  Transmission Date: 20260118
  Serious: No
  Sender: SPECGX
  Company Number: US-SPECGX-T202500644

PATIENT

DRUGS (1)
  1. DEXTROAMPHETAMINE SACCHARATE, AMPHETAMINE ASPARTATE, DEXTROAMPHETAMINE [Suspect]
     Active Substance: AMPHETAMINE ASPARTATE\AMPHETAMINE SULFATE\DEXTROAMPHETAMINE SACCHARATE\DEXTROAMPHETAMINE SULFATE
     Indication: Product used for unknown indication
     Dosage: 30 MILLIGRAM, QD (TWO IN THE MORNING AND ONE AROUND 1 PM)
     Route: 065
     Dates: start: 20250303

REACTIONS (10)
  - Condition aggravated [Unknown]
  - Agitation [Unknown]
  - Feeling abnormal [Unknown]
  - Insomnia [Unknown]
  - Anxiety [Unknown]
  - Thinking abnormal [Unknown]
  - Anger [Unknown]
  - Rash [Unknown]
  - Irritability [Unknown]
  - Drug ineffective [Unknown]

NARRATIVE: CASE EVENT DATE: 20250301
